FAERS Safety Report 24414038 (Version 3)
Quarter: 2025Q1

REPORT INFORMATION
  Report Type: Report from Study
  Country: US (occurrence: US)
  Receive Date: 20241008
  Receipt Date: 20250109
  Transmission Date: 20250408
  Serious: No
  Sender: SUNOVION
  Company Number: US-SUMITOMO PHARMA SWITZERLAND GMBH-2024SPA003307

PATIENT

DRUGS (2)
  1. ORGOVYX [Suspect]
     Active Substance: RELUGOLIX
     Indication: Prostate cancer
     Dosage: 120 MG, QD
     Route: 048
     Dates: start: 20240924
  2. CIALIS [Suspect]
     Active Substance: TADALAFIL
     Route: 065

REACTIONS (5)
  - Pain [Unknown]
  - Dysuria [Unknown]
  - Hot flush [Unknown]
  - Hyperhidrosis [Unknown]
  - Incorrect dose administered [Unknown]
